APPROVED DRUG PRODUCT: FINASTERIDE
Active Ingredient: FINASTERIDE
Strength: 1MG
Dosage Form/Route: TABLET;ORAL
Application: A078371 | Product #001
Applicant: ACTAVIS TOTOWA LLC
Approved: Nov 5, 2013 | RLD: No | RS: No | Type: DISCN